FAERS Safety Report 5684938-3 (Version None)
Quarter: 2008Q1

REPORT INFORMATION
  Report Type: 
  Country: None (occurrence: None)
  Receive Date: 20080328
  Receipt Date: 20080110
  Transmission Date: 20080703
  Serious: Yes (Hospitalization)
  Sender: FDA-Public Use
  Company Number: US-BRISTOL-MYERS SQUIBB COMPANY-14036347

PATIENT
  Age: 86 Year
  Sex: Male
  Weight: 102 kg

DRUGS (1)
  1. ERBITUX [Suspect]

REACTIONS (1)
  - ADVERSE EVENT [None]
